FAERS Safety Report 14833709 (Version 1)
Quarter: 2018Q2

REPORT INFORMATION
  Report Type: Spontaneous
  Country: US (occurrence: US)
  Receive Date: 20180501
  Receipt Date: 20180501
  Transmission Date: 20180711
  Serious: No
  Sender: FDA-Public Use
  Company Number: US-ROCHE-1911161

PATIENT
  Sex: Male
  Weight: 87.17 kg

DRUGS (2)
  1. AVASTIN [Suspect]
     Active Substance: BEVACIZUMAB
     Indication: NEOVASCULAR AGE-RELATED MACULAR DEGENERATION
     Dosage: VIAL STRENGTH 100 MG/ 4 ML)
     Route: 050
  2. PREDNISONE ACETATE [Concomitant]
     Active Substance: PREDNISONE ACETATE
     Dosage: SUSPENSION 1 %
     Route: 047

REACTIONS (5)
  - Vitreous floaters [Unknown]
  - Photophobia [Unknown]
  - Pain [Unknown]
  - Vision blurred [Unknown]
  - Visual impairment [Unknown]
